FAERS Safety Report 24543633 (Version 1)
Quarter: 2024Q4

REPORT INFORMATION
  Report Type: Report from Study
  Country: US (occurrence: US)
  Receive Date: 20241024
  Receipt Date: 20241024
  Transmission Date: 20250114
  Serious: No
  Sender: ACADIA PHARMACEUTICALS
  Company Number: US-ACADIA PHARMACEUTICALS INC.-ACA-2024-PIM-006152

PATIENT
  Sex: Female

DRUGS (18)
  1. NUPLAZID [Suspect]
     Active Substance: PIMAVANSERIN TARTRATE
     Indication: Parkinson^s disease
     Dosage: 34 MILLIGRAM, QD
     Route: 048
     Dates: start: 2019
  2. ELIQUIS [Concomitant]
     Active Substance: APIXABAN
  3. EFFEXOR [Concomitant]
     Active Substance: VENLAFAXINE HYDROCHLORIDE
  4. XANAX [Concomitant]
     Active Substance: ALPRAZOLAM
  5. PLAVIX [Concomitant]
     Active Substance: CLOPIDOGREL BISULFATE
  6. TYLENOL [Concomitant]
     Active Substance: ACETAMINOPHEN
  7. LIPITOR [Concomitant]
     Active Substance: ATORVASTATIN CALCIUM
  8. COLESTIPOL [Concomitant]
     Active Substance: COLESTIPOL
  9. HYDROCODONE [Concomitant]
     Active Substance: HYDROCODONE
  10. VITAMIN C [Concomitant]
     Active Substance: ASCORBIC ACID
  11. LACOSAMIDE [Concomitant]
     Active Substance: LACOSAMIDE
  12. MAGNESIUM [Concomitant]
     Active Substance: MAGNESIUM
  13. LASIX [Concomitant]
     Active Substance: FUROSEMIDE
  14. CARVEDILOL [Concomitant]
     Active Substance: CARVEDILOL
  15. CHOLECALCIFEROL [Concomitant]
     Active Substance: CHOLECALCIFEROL
  16. VITAMIN B12 [Concomitant]
     Active Substance: CYANOCOBALAMIN
  17. POTASSIUM [Concomitant]
     Active Substance: POTASSIUM
  18. SINEMET [Concomitant]
     Active Substance: CARBIDOPA\LEVODOPA

REACTIONS (1)
  - Allergy to vaccine [Unknown]
